FAERS Safety Report 7715134-3 (Version None)
Quarter: 2011Q3

REPORT INFORMATION
  Report Type: 
  Country: None (occurrence: None)
  Receive Date: 20110829
  Receipt Date: 20110818
  Transmission Date: 20111222
  Serious: Yes (Other)
  Sender: FDA-Public Use
  Company Number: PHEH2010US03508

PATIENT
  Sex: Female
  Weight: 74.83 kg

DRUGS (11)
  1. VICODIN [Concomitant]
  2. CYTOXAN [Concomitant]
     Dates: start: 20061129
  3. ZOFRAN [Concomitant]
     Dosage: 8 MG, BID
  4. CIPROFLOXACIN [Concomitant]
     Dosage: 500 MG, BID
  5. LASIX [Concomitant]
     Dosage: 1 DF, QD
     Route: 048
  6. ZOMETA [Suspect]
  7. CLINDAMYCIN [Concomitant]
  8. FLUCONAZOLE [Concomitant]
     Dosage: 2 DF, QD
     Route: 048
  9. ADRIAMYCIN PFS [Concomitant]
     Dates: start: 20061129
  10. DEXAMETHASONE [Concomitant]
     Dosage: 4 MG, QID
  11. TAMOXIFEN CITRATE [Concomitant]

REACTIONS (15)
  - METASTASES TO BONE [None]
  - HYPOAESTHESIA [None]
  - MUSCULAR WEAKNESS [None]
  - GAIT DISTURBANCE [None]
  - HUMERUS FRACTURE [None]
  - OSTEONECROSIS OF JAW [None]
  - PAIN [None]
  - OVERDOSE [None]
  - BREAST CANCER METASTATIC [None]
  - MYALGIA [None]
  - CONVULSION [None]
  - BACK PAIN [None]
  - WEIGHT DECREASED [None]
  - DEFORMITY [None]
  - INFECTION [None]
